FAERS Safety Report 6975190-7 (Version None)
Quarter: 2010Q3

REPORT INFORMATION
  Report Type: 
  Country: None (occurrence: None)
  Receive Date: 20100910
  Receipt Date: 20090217
  Transmission Date: 20110219
  Serious: No
  Sender: FDA-Public Use
  Company Number: US-WYE-H08251509

PATIENT
  Sex: Female
  Weight: 129.39 kg

DRUGS (6)
  1. PRISTIQ [Suspect]
     Indication: DEPRESSION
     Route: 048
     Dates: start: 20090205
  2. LORAZEPAM [Concomitant]
  3. BENICAR HCT [Concomitant]
  4. TIZANIDINE HCL [Concomitant]
  5. VICODIN [Concomitant]
  6. AMBIEN [Concomitant]

REACTIONS (3)
  - CRYING [None]
  - DRUG INEFFECTIVE [None]
  - PARAESTHESIA [None]
